FAERS Safety Report 17447311 (Version 4)
Quarter: 2020Q2

REPORT INFORMATION
  Report Type: Report from Study
  Country: CA (occurrence: CA)
  Receive Date: 20200221
  Receipt Date: 20200424
  Transmission Date: 20200713
  Serious: Yes (Death, Hospitalization, Other)
  Sender: FDA-Public Use
  Company Number: CA-JNJFOC-20191206768

PATIENT
  Age: 67 Year
  Sex: Male

DRUGS (3)
  1. REMICADE [Suspect]
     Active Substance: INFLIXIMAB
     Route: 042
  2. REMICADE [Suspect]
     Active Substance: INFLIXIMAB
     Route: 042
  3. REMICADE [Suspect]
     Active Substance: INFLIXIMAB
     Indication: CROHN^S DISEASE
     Route: 042
     Dates: start: 20161216, end: 20200116

REACTIONS (6)
  - Pneumocystis jirovecii infection [Fatal]
  - Mobility decreased [Unknown]
  - Cardiac disorder [Unknown]
  - Cerebrovascular accident [Unknown]
  - Respiratory tract infection [Recovered/Resolved]
  - Musculoskeletal disorder [Unknown]

NARRATIVE: CASE EVENT DATE: 201911
